FAERS Safety Report 5015304-1 (Version None)
Quarter: 2006Q2

REPORT INFORMATION
  Report Type: 
  Country: None (occurrence: None)
  Receive Date: 20060601
  Receipt Date: 20060522
  Transmission Date: 20061013
  Serious: Yes (Other)
  Sender: FDA-Public Use
  Company Number: PHBS2006BR07703

PATIENT
  Age: 82 Year
  Sex: Female

DRUGS (5)
  1. CODATEN [Suspect]
     Indication: PROCEDURAL PAIN
     Dosage: 1 DF, Q12H
     Route: 048
     Dates: end: 20060522
  2. MICARDIS [Concomitant]
     Indication: POSTOPERATIVE CARE
     Dosage: 0.5 TAB/DAY
  3. DIOVAN [Concomitant]
     Indication: POSTOPERATIVE CARE
     Dosage: 160 MG/DAY
  4. MARCOUMAR [Concomitant]
  5. VITAMINS [Concomitant]

REACTIONS (7)
  - DRUG DEPENDENCE [None]
  - DYSPEPSIA [None]
  - HALLUCINATION, VISUAL [None]
  - INSOMNIA [None]
  - MENTAL DISORDER [None]
  - PRURITUS [None]
  - RETCHING [None]
